FAERS Safety Report 5231332-5 (Version None)
Quarter: 2007Q1

REPORT INFORMATION
  Report Type: 
  Country: None (occurrence: None)
  Receive Date: 20070206
  Receipt Date: 20070125
  Transmission Date: 20070707
  Serious: Yes (Other)
  Sender: FDA-Public Use
  Company Number: HQWYE714126JAN07

PATIENT
  Sex: Female
  Weight: 72.64 kg

DRUGS (5)
  1. EFFEXOR XR [Suspect]
     Indication: DEPRESSION
     Route: 048
     Dates: start: 20060214, end: 20060220
  2. EFFEXOR XR [Suspect]
     Indication: BACK PAIN
     Route: 048
     Dates: start: 20060221, end: 20060316
  3. FLONASE [Concomitant]
     Indication: HYPERSENSITIVITY
     Dosage: 50 MCG 2 SQUIRTS EACH NOSTRIL DAILY
     Route: 045
  4. ZYRTEC [Concomitant]
     Indication: HYPERSENSITIVITY
     Route: 048
     Dates: start: 19950101
  5. FLEXERIL [Concomitant]
     Indication: BACK PAIN
     Route: 048
     Dates: start: 20050701

REACTIONS (8)
  - ANXIETY [None]
  - BLOOD PRESSURE INCREASED [None]
  - DIZZINESS [None]
  - DRUG WITHDRAWAL SYNDROME [None]
  - EPISTAXIS [None]
  - INSOMNIA [None]
  - MIGRAINE [None]
  - PAIN [None]
